FAERS Safety Report 12239488 (Version 1)
Quarter: 2016Q2

REPORT INFORMATION
  Report Type: Spontaneous
  Country: US (occurrence: US)
  Receive Date: 20160405
  Receipt Date: 20160405
  Transmission Date: 20160815
  Serious: Yes (Other)
  Sender: FDA-Public Use
  Company Number: US-HORIZON-ACT-0078-2016

PATIENT
  Age: 50 Year
  Sex: Female

DRUGS (2)
  1. ACTIMMUNE [Suspect]
     Active Substance: INTERFERON GAMMA-1B
     Indication: CHRONIC GRANULOMATOUS DISEASE
     Dosage: 200 ?G THREE TIMES WEEKLY
  2. ONFI [Concomitant]
     Active Substance: CLOBAZAM
     Indication: SEIZURE

REACTIONS (2)
  - Suicidal ideation [Unknown]
  - Seizure [Unknown]
